FAERS Safety Report 4782482-9 (Version None)
Quarter: 2005Q3

REPORT INFORMATION
  Report Type: 
  Country: None (occurrence: None)
  Receive Date: 20050929
  Receipt Date: 20041216
  Transmission Date: 20060218
  Serious: No
  Sender: FDA-Public Use
  Company Number: 393035

PATIENT
  Age: 50 Year
  Sex: Female

DRUGS (8)
  1. COREG [Suspect]
     Indication: DRUG USE FOR UNKNOWN INDICATION
     Dosage: 3.125MG TWICE PER DAY
     Route: 048
     Dates: start: 20041213, end: 20041215
  2. LOZOL [Concomitant]
  3. SPIRONOLACTONE [Concomitant]
  4. HUMULIN INSULIN [Concomitant]
  5. ZANTAC [Concomitant]
  6. LOMOTIL [Concomitant]
  7. REGLAN [Concomitant]
  8. TEMAZEPAM [Concomitant]

REACTIONS (2)
  - EPISTAXIS [None]
  - HEADACHE [None]
